FAERS Safety Report 14032309 (Version 2)
Quarter: 2017Q4

REPORT INFORMATION
  Report Type: Spontaneous
  Country: US (occurrence: US)
  Receive Date: 20171002
  Receipt Date: 20171005
  Transmission Date: 20180321
  Serious: No
  Sender: FDA-Public Use
  Company Number: US-PFIZER INC-2017422591

PATIENT
  Age: 71 Year
  Sex: Female
  Weight: 58.97 kg

DRUGS (4)
  1. QUETIAPINE. [Concomitant]
     Active Substance: QUETIAPINE
     Indication: RESTLESS LEGS SYNDROME
  2. LYRICA [Suspect]
     Active Substance: PREGABALIN
     Indication: NEURALGIA
     Dosage: 25 MG, 3X/DAY
     Route: 048
     Dates: start: 20170925
  3. QUETIAPINE. [Concomitant]
     Active Substance: QUETIAPINE
     Indication: PAIN IN EXTREMITY
     Dosage: 25 MG, 1X/DAY (ONE TIME AT BEDTIME)
     Route: 048
  4. AMITRIPTYLINE [Concomitant]
     Active Substance: AMITRIPTYLINE
     Indication: RESTLESS LEGS SYNDROME
     Dosage: 25 MG, 1X/DAY (ONCE AT NIGHT)
     Route: 048

REACTIONS (3)
  - Drug effect incomplete [Unknown]
  - Dizziness [Not Recovered/Not Resolved]
  - Muscle spasms [Not Recovered/Not Resolved]

NARRATIVE: CASE EVENT DATE: 20170925
